FAERS Safety Report 5117508-6 (Version None)
Quarter: 2006Q3

REPORT INFORMATION
  Report Type: 
  Country: None (occurrence: None)
  Receive Date: 20060926
  Receipt Date: 20060906
  Transmission Date: 20061208
  Serious: Yes (Other)
  Sender: FDA-Public Use
  Company Number: US200609001707

PATIENT
  Age: 71 Year
  Sex: Female

DRUGS (6)
  1. HUMULIN 70/30 [Suspect]
     Indication: DIABETES MELLITUS NON-INSULIN-DEPENDENT
     Dosage: 15 U 2/D, UNK
     Dates: start: 20030101
  2. LISINOPRIL [Concomitant]
  3. BUMEX [Concomitant]
  4. ASPIRIN [Concomitant]
  5. LIPITOR [Concomitant]
  6. LANTUS [Concomitant]

REACTIONS (13)
  - BLOOD CREATININE INCREASED [None]
  - CARDIAC FAILURE CONGESTIVE [None]
  - CRYING [None]
  - DYSGEUSIA [None]
  - DYSPNOEA [None]
  - EYE DISORDER [None]
  - FEELING ABNORMAL [None]
  - HEART RATE IRREGULAR [None]
  - NAUSEA [None]
  - OEDEMA PERIPHERAL [None]
  - PALPITATIONS [None]
  - PHARMACEUTICAL PRODUCT COMPLAINT [None]
  - VISION BLURRED [None]
